FAERS Safety Report 8854946 (Version 1)
Quarter: 2012Q4

REPORT INFORMATION
  Report Type: 
  Country: US (occurrence: US)
  Receive Date: 20121023
  Receipt Date: 20121023
  Transmission Date: 20130627
  Serious: No
  Sender: FDA-Public Use
  Company Number: US-009507513-1208USA010832

PATIENT
  Sex: Male

DRUGS (8)
  1. VICTRELIS [Suspect]
     Dosage: 200 mg, 4 caps, tid
     Route: 048
  2. PEGASYS [Concomitant]
  3. RIBAVIRIN [Concomitant]
     Dosage: 200 mg, UNK
  4. PRILOSEC [Concomitant]
     Dosage: 20 mg, UNK
  5. SPIRIVA [Concomitant]
     Route: 055
  6. OMEGA-3 MARINE TRIGLYCERIDES [Concomitant]
  7. VITAMINS (UNSPECIFIED) [Concomitant]
  8. HYDROCHLOROTHIAZIDE (+) TRIAMTERENE [Concomitant]
     Dosage: UNK mg, UNK

REACTIONS (1)
  - White blood cell count decreased [Unknown]
